FAERS Safety Report 7916729-4 (Version None)
Quarter: 2011Q4

REPORT INFORMATION
  Report Type: 
  Country: None (occurrence: None)
  Receive Date: 20111114
  Receipt Date: 20111104
  Transmission Date: 20120403
  Serious: Yes (Other)
  Sender: FDA-Public Use
  Company Number: DSA_47875_2011

PATIENT
  Sex: Female
  Weight: 130.6 kg

DRUGS (14)
  1. SEROQUEL [Concomitant]
  2. PERCOCET [Concomitant]
  3. MELOXICAM [Concomitant]
  4. MULTI-VITAMINS [Concomitant]
  5. TEGRETOL [Concomitant]
  6. BISOPROLOL W/HYDROCHLOROTHIAZIDE /06833601/ [Concomitant]
  7. PROTONIX [Concomitant]
  8. DETROL LA [Concomitant]
  9. LUNESTA [Concomitant]
  10. ADVAIR DISKUS 100/50 [Concomitant]
  11. PROVENTIL /00139501/ [Concomitant]
  12. XENAZINE [Suspect]
     Indication: DYSTONIA
     Dosage: (25 MG TID ORAL)
     Route: 048
     Dates: start: 20090903
  13. SPIRONOLACTONE [Concomitant]
  14. CENESTIN [Concomitant]

REACTIONS (17)
  - CONFUSIONAL STATE [None]
  - PERSEVERATION [None]
  - ESCHERICHIA URINARY TRACT INFECTION [None]
  - APRAXIA [None]
  - TREMOR [None]
  - COGNITIVE DISORDER [None]
  - POSTURING [None]
  - UNRESPONSIVE TO STIMULI [None]
  - GASTRIC DISORDER [None]
  - MENTAL STATUS CHANGES [None]
  - TREATMENT NONCOMPLIANCE [None]
  - MEMORY IMPAIRMENT [None]
  - DYSPHAGIA [None]
  - FALL [None]
  - CONCUSSION [None]
  - DEMENTIA [None]
  - HEAD INJURY [None]
